FAERS Safety Report 24686280 (Version 1)
Quarter: 2024Q4

REPORT INFORMATION
  Report Type: Spontaneous
  Country: US (occurrence: None)
  Receive Date: 20241202
  Receipt Date: 20241202
  Transmission Date: 20250115
  Serious: No
  Sender: USAntibiotics
  Company Number: US-USAntibiotics-000365

PATIENT
  Age: 77 Year
  Sex: Male

DRUGS (3)
  1. AUGMENTIN [Suspect]
     Active Substance: AMOXICILLIN\CLAVULANATE POTASSIUM
     Indication: Sinus headache
  2. OFEV [Suspect]
     Active Substance: NINTEDANIB
     Indication: Idiopathic pulmonary fibrosis
     Dosage: 300 MG DAILY
     Route: 048
     Dates: start: 20240822
  3. FUROSEMIDE [Suspect]
     Active Substance: FUROSEMIDE
     Indication: Product used for unknown indication
     Dosage: AS NEEDED

REACTIONS (4)
  - Diarrhoea [Recovered/Resolved]
  - Constipation [Unknown]
  - Sinus headache [Unknown]
  - Headache [Unknown]

NARRATIVE: CASE EVENT DATE: 20240925
